FAERS Safety Report 8576724-1 (Version None)
Quarter: 2012Q3

REPORT INFORMATION
  Report Type: 
  Country: None (occurrence: None)
  Receive Date: 20120807
  Receipt Date: 20120731
  Transmission Date: 20120928
  Serious: Yes (Hospitalization)
  Sender: FDA-Public Use
  Company Number: GB-GLAXOSMITHKLINE-B0819969A

PATIENT
  Sex: Female

DRUGS (2)
  1. REVOLADE [Suspect]
     Indication: IDIOPATHIC THROMBOCYTOPENIC PURPURA
     Route: 048
  2. PAINKILLER [Suspect]
     Indication: PRODUCT USED FOR UNKNOWN INDICATION
     Route: 065

REACTIONS (6)
  - HEADACHE [None]
  - ABDOMINAL PAIN UPPER [None]
  - OVERDOSE [None]
  - PLATELET COUNT INCREASED [None]
  - MALAISE [None]
  - ARTHRALGIA [None]
